FAERS Safety Report 8775872 (Version 6)
Quarter: 2014Q2

REPORT INFORMATION
  Report Type: Spontaneous
  Country: US (occurrence: US)
  Receive Date: 20120910
  Receipt Date: 20140520
  Transmission Date: 20141212
  Serious: Yes (Death, Hospitalization, Disabling, Other)
  Sender: FDA-Public Use
  Company Number: US-009507513-1205USA00305

PATIENT
  Sex: Female

DRUGS (4)
  1. FOSAMAX [Suspect]
     Indication: BONE DISORDER
     Dosage: UNK
     Route: 048
     Dates: start: 2005, end: 2011
  2. FOSAMAX [Suspect]
     Indication: OSTEOPOROSIS
     Dosage: 70 MG, QW
     Route: 048
     Dates: start: 200301
  3. FOSAMAX [Suspect]
     Indication: OSTEOPOROSIS
     Dosage: 70 MG, UNK
     Route: 048
     Dates: start: 20110107, end: 201201
  4. ALENDRONATE SODIUM [Suspect]

REACTIONS (61)
  - Femur fracture [Unknown]
  - Femur fracture [Unknown]
  - Femur fracture [Not Recovered/Not Resolved]
  - Hip arthroplasty [Unknown]
  - Hip fracture [Unknown]
  - Death [Fatal]
  - Cerebrovascular accident [Unknown]
  - Low turnover osteopathy [Not Recovered/Not Resolved]
  - Implantable defibrillator insertion [Unknown]
  - Prosthesis implantation [Unknown]
  - Atrial fibrillation [Unknown]
  - Post procedural constipation [Recovered/Resolved]
  - Sick sinus syndrome [Unknown]
  - Haemorrhoids [Unknown]
  - Conduction disorder [Unknown]
  - Bradyarrhythmia [Unknown]
  - Deafness [Unknown]
  - Dementia [Unknown]
  - Cardioversion [Unknown]
  - Hiatus hernia [Unknown]
  - Transfusion [Unknown]
  - Knee arthroplasty [Unknown]
  - Gastric haemorrhage [Unknown]
  - Hip fracture [Unknown]
  - Gastritis [Unknown]
  - Gait disturbance [Unknown]
  - Impaired healing [Unknown]
  - Fall [Unknown]
  - Lobar pneumonia [Unknown]
  - Pneumonia [Unknown]
  - Visual acuity reduced [Unknown]
  - Leukocytosis [Unknown]
  - Renal mass [Unknown]
  - Hepatic cyst [Unknown]
  - Ovarian cyst [Unknown]
  - Coronary artery disease [Unknown]
  - Depression [Not Recovered/Not Resolved]
  - Anaemia postoperative [Recovered/Resolved]
  - Hyperlipidaemia [Unknown]
  - Glaucoma [Unknown]
  - Decubitus ulcer [Unknown]
  - Ovarian calcification [Unknown]
  - Cholelithiasis [Unknown]
  - Haemorrhoid operation [Unknown]
  - Cataract [Unknown]
  - Fear [Not Recovered/Not Resolved]
  - Osteoarthritis [Unknown]
  - Colitis [Unknown]
  - Renal cyst [Unknown]
  - Oesophageal dilatation [Unknown]
  - Hypertension [Unknown]
  - Anxiety [Not Recovered/Not Resolved]
  - Candida infection [Unknown]
  - Pulmonary mass [Unknown]
  - Barrett^s oesophagus [Unknown]
  - Reflux laryngitis [Unknown]
  - Abdominal distension [Unknown]
  - Asthenia [Unknown]
  - Constipation [Unknown]
  - Diarrhoea [Unknown]
  - Gastrooesophageal reflux disease [Unknown]
